FAERS Safety Report 8272155-2 (Version None)
Quarter: 2012Q2

REPORT INFORMATION
  Report Type: 
  Country: None (occurrence: None)
  Receive Date: 20120410
  Receipt Date: 20120313
  Transmission Date: 20120825
  Serious: No
  Sender: FDA-Public Use
  Company Number: US-ASTRAZENECA-2012SE17180

PATIENT
  Age: 64 Year
  Sex: Male

DRUGS (9)
  1. VANDETANIB [Suspect]
     Indication: THYROID CANCER
     Route: 048
  2. DOCUSATE SODIUM [Concomitant]
  3. LEVOTHYROXINE SODIUM [Concomitant]
  4. AVODART [Concomitant]
  5. HYRDOCODONE-ACETAMINOPHEN [Concomitant]
  6. SENNA LEAVES [Concomitant]
  7. MULTIVITAL [Concomitant]
  8. CALCITRIOL [Concomitant]
  9. FAMOTIDINE [Concomitant]

REACTIONS (4)
  - DIARRHOEA [None]
  - MUSCULOSKELETAL CHEST PAIN [None]
  - DYSPNOEA [None]
  - RASH [None]
